FAERS Safety Report 13346231 (Version 1)
Quarter: 2017Q1

REPORT INFORMATION
  Report Type: Spontaneous
  Country: US (occurrence: US)
  Receive Date: 20170317
  Receipt Date: 20170317
  Transmission Date: 20170428
  Serious: Yes (Other)
  Sender: FDA-Public Use
  Company Number: US-GLAXOSMITHKLINE-US2017037628

PATIENT
  Age: 75 Year
  Sex: Male

DRUGS (1)
  1. DICLOFENAC SODIUM. [Suspect]
     Active Substance: DICLOFENAC SODIUM
     Indication: DIABETIC NEUROPATHY
     Dosage: UNK

REACTIONS (5)
  - Renal haemorrhage [Not Recovered/Not Resolved]
  - Incorrect dosage administered [Unknown]
  - Dialysis [Unknown]
  - Off label use [Unknown]
  - Wrong technique in product usage process [Unknown]
